FAERS Safety Report 15219248 (Version 1)
Quarter: 2018Q3

REPORT INFORMATION
  Report Type: Report from Study
  Country: JP (occurrence: JP)
  Receive Date: 20180731
  Receipt Date: 20180731
  Transmission Date: 20181010
  Serious: Yes (Life-Threatening, Other)
  Sender: FDA-Public Use
  Company Number: JP-ACCORD-069912

PATIENT
  Age: 70 Year
  Sex: Female

DRUGS (2)
  1. FLUOROURACIL. [Suspect]
     Active Substance: FLUOROURACIL
     Indication: ANAL CANCER STAGE I
     Dosage: DURING WEEKS 1 AND 5, OVER 4 DAYS, 2 CYCLES
  2. MITOMYCIN. [Suspect]
     Active Substance: MITOMYCIN
     Indication: ANAL CANCER STAGE I
     Dosage: DURING WEEKS 1 AND 5, 2 CYCLES

REACTIONS (1)
  - Mucosal inflammation [Unknown]
